FAERS Safety Report 9795467 (Version 1)
Quarter: 2014Q1

REPORT INFORMATION
  Report Type: Spontaneous
  Country: US (occurrence: US)
  Receive Date: 20140103
  Receipt Date: 20140103
  Transmission Date: 20141002
  Serious: Yes (Hospitalization, Other)
  Sender: FDA-Public Use
  Company Number: US-BAYER-2014-000709

PATIENT
  Age: 48 Year
  Sex: Female

DRUGS (4)
  1. YAZ [Suspect]
  2. YASMIN [Suspect]
  3. LORTAB [Concomitant]
  4. MULTIVITAMIN [Concomitant]
     Dosage: UNK, 1 DAILY
     Route: 048
     Dates: start: 20100126

REACTIONS (3)
  - Pulmonary embolism [None]
  - Gallbladder operation [None]
  - Deep vein thrombosis [None]
